FAERS Safety Report 8036626-6 (Version None)
Quarter: 2012Q1

REPORT INFORMATION
  Report Type: 
  Country: None (occurrence: None)
  Receive Date: 20120111
  Receipt Date: 20120105
  Transmission Date: 20120608
  Serious: Yes (Other)
  Sender: FDA-Public Use
  Company Number: US-JNJFOC-20120101975

PATIENT
  Sex: Female
  Weight: 65.77 kg

DRUGS (1)
  1. FLEXERIL [Suspect]
     Indication: INTERVERTEBRAL DISC DISORDER
     Route: 048

REACTIONS (2)
  - MACULAR DEGENERATION [None]
  - ATRIAL FIBRILLATION [None]
